FAERS Safety Report 7170909-7 (Version None)
Quarter: 2010Q4

REPORT INFORMATION
  Report Type: 
  Country: None (occurrence: None)
  Receive Date: 20101217
  Receipt Date: 20101209
  Transmission Date: 20110411
  Serious: Yes (Death)
  Sender: FDA-Public Use
  Company Number: US-GENENTECH-310066

PATIENT
  Sex: Male

DRUGS (1)
  1. RITUXIMAB [Suspect]
     Indication: RHEUMATOID ARTHRITIS
     Dosage: 1000 MG, Q2W
     Route: 042
     Dates: start: 20071016

REACTIONS (5)
  - CHEST PAIN [None]
  - DEATH [None]
  - HYPOTENSION [None]
  - PULMONARY HILUM MASS [None]
  - SINUS TACHYCARDIA [None]
